FAERS Safety Report 6412510-6 (Version None)
Quarter: 2009Q4

REPORT INFORMATION
  Report Type: 
  Country: None (occurrence: None)
  Receive Date: 20091023
  Receipt Date: 20090422
  Transmission Date: 20100525
  Serious: No
  Sender: FDA-Public Use
  Company Number: US-BRISTOL-MYERS SQUIBB COMPANY-14597744

PATIENT
  Age: 40 Year
  Sex: Female
  Weight: 50 kg

DRUGS (2)
  1. KENALOG-40 [Suspect]
     Indication: HYPERSENSITIVITY
     Dosage: ALSO ON 05/2008
     Dates: start: 20080201
  2. MULTI-VITAMIN [Concomitant]

REACTIONS (2)
  - INJECTION SITE REACTION [None]
  - PAIN [None]
